FAERS Safety Report 5017353-6 (Version None)
Quarter: 2006Q2

REPORT INFORMATION
  Report Type: 
  Country: None (occurrence: None)
  Receive Date: 20060414
  Receipt Date: 20060301
  Transmission Date: 20061013
  Serious: No
  Sender: FDA-Public Use
  Company Number: 2006SP001010

PATIENT
  Age: 69 Year
  Sex: Female
  Weight: 61.2356 kg

DRUGS (7)
  1. LUNESTA [Suspect]
     Indication: INSOMNIA
     Dosage: 2 MG; HS; ORAL
     Route: 048
     Dates: start: 20060201
  2. SIMVASTATIN [Concomitant]
  3. MULTIVITAMIN [Concomitant]
  4. CAROTABEN [Concomitant]
  5. COENZYME Q10 [Concomitant]
  6. ASCORBIC ACID [Concomitant]
  7. VITAMIN B COMPLEX CAP [Concomitant]

REACTIONS (2)
  - DYSGEUSIA [None]
  - INITIAL INSOMNIA [None]
